FAERS Safety Report 14018444 (Version 1)
Quarter: 2017Q3

REPORT INFORMATION
  Report Type: Spontaneous
  Country: US (occurrence: US)
  Receive Date: 20170928
  Receipt Date: 20170928
  Transmission Date: 20171128
  Serious: No
  Sender: FDA-Public Use
  Company Number: US-TEVA-725021ACC

PATIENT
  Age: 68 Year
  Sex: Female
  Weight: 90.8 kg

DRUGS (2)
  1. METHOTREXATE. [Concomitant]
     Active Substance: METHOTREXATE
  2. GABAPENTIN. [Suspect]
     Active Substance: GABAPENTIN
     Indication: FIBROMYALGIA

REACTIONS (4)
  - Vision blurred [Unknown]
  - Headache [Unknown]
  - Hangover [Unknown]
  - Nausea [Unknown]

NARRATIVE: CASE EVENT DATE: 20160916
